FAERS Safety Report 21704921 (Version 1)
Quarter: 2022Q4

REPORT INFORMATION
  Report Type: Spontaneous
  Country: US (occurrence: US)
  Receive Date: 20221209
  Receipt Date: 20221209
  Transmission Date: 20230113
  Serious: No
  Sender: FDA-Public Use
  Company Number: US-drreddys-SPO/USA/22/0157933

PATIENT
  Age: 35 Year
  Sex: Female

DRUGS (5)
  1. ZENATANE [Suspect]
     Active Substance: ISOTRETINOIN
     Indication: Product used for unknown indication
     Dosage: RMA ISSUE DATE:08 MARCH 2022 02:03:45 PM; 07 APRIL 2022 05:08:03 PM; 09 MAY 2022 12:48:51 PM; 10 JUN
  2. CLARAVIS [Concomitant]
     Active Substance: ISOTRETINOIN
     Indication: Product used for unknown indication
     Dosage: RMA ISSUE DATE: 22 JANUARY 2020 12:00:00 AM; 25 FEBRUARY 2020 12:00:00 AM
  3. MYORISAN [Concomitant]
     Active Substance: ISOTRETINOIN
     Indication: Product used for unknown indication
     Dosage: RMA ISSUE DATE: 27 MARCH 2020 12:00:00 AM; 30 APRIL 2020 12:00:00 AM
  4. AMNESTEEM [Concomitant]
     Active Substance: ISOTRETINOIN
     Indication: Product used for unknown indication
     Dosage: RMA ISSUE DATE: 01 JULY 2021 03:47:33 PM
  5. Amneal [Concomitant]
     Indication: Product used for unknown indication
     Dosage: RMA ISSUE DATE: 22 AUGUST 2022 09:36:04 AM

REACTIONS (1)
  - Arthralgia [Unknown]
